FAERS Safety Report 6667732-6 (Version None)
Quarter: 2010Q1

REPORT INFORMATION
  Report Type: 
  Country: None (occurrence: None)
  Receive Date: 20100331
  Receipt Date: 20100323
  Transmission Date: 20100710
  Serious: Yes (Hospitalization, Other)
  Sender: FDA-Public Use
  Company Number: CIP10000653

PATIENT
  Sex: Female

DRUGS (6)
  1. DIDRONEL [Suspect]
     Indication: ANGINA PECTORIS
     Dosage: DOSAGE/REGIMEN, ORAL
     Route: 048
     Dates: start: 19990101
  2. DIDRONEL [Suspect]
     Indication: OSTEOPOROSIS
     Dosage: DOSAGE/REGIMEN, ORAL
     Route: 048
     Dates: start: 19990101
  3. DIDRONEL [Suspect]
     Indication: SPINAL COLUMN STENOSIS
     Dosage: DOSAGE/REGIMEN, ORAL
     Route: 048
     Dates: start: 19990101
  4. FOSAMAX [Suspect]
     Indication: ANGINA PECTORIS
     Dosage: 5 MG DAILY, ORAL
     Route: 048
     Dates: start: 20090101
  5. FOSAMAX [Suspect]
     Indication: OSTEOPOROSIS
     Dosage: 5 MG DAILY, ORAL
     Route: 048
     Dates: start: 20090101
  6. FOSAMAX [Suspect]
     Indication: SPINAL COLUMN STENOSIS
     Dosage: 5 MG DAILY, ORAL
     Route: 048
     Dates: start: 20090101

REACTIONS (7)
  - IMPLANT SITE DISCHARGE [None]
  - IMPLANT SITE PAIN [None]
  - JAW DISORDER [None]
  - ORAL PAIN [None]
  - OSTEONECROSIS [None]
  - PARALYSIS [None]
  - TOOTH DISORDER [None]
